FAERS Safety Report 4321748-3 (Version None)
Quarter: 2004Q1

REPORT INFORMATION
  Report Type: 
  Country: None (occurrence: None)
  Receive Date: 20040322
  Receipt Date: 20040322
  Transmission Date: 20041129
  Serious: Yes (Hospitalization)
  Sender: FDA-Public Use
  Company Number: None

PATIENT
  Age: 73 Year
  Sex: Male

DRUGS (2)
  1. REMIFENTANIL HCL [Suspect]
     Indication: SEDATION
     Dosage: 200 MCG X 1 DOSE IV
     Route: 042
     Dates: start: 20031105, end: 20031105
  2. HYDROCODONE/ACETAMINOPHEN [Concomitant]

REACTIONS (2)
  - CONVULSION [None]
  - RESPIRATORY ARREST [None]
